FAERS Safety Report 20193482 (Version 1)
Quarter: 2021Q4

REPORT INFORMATION
  Report Type: Spontaneous
  Country: US (occurrence: None)
  Receive Date: 20211215
  Receipt Date: 20211215
  Transmission Date: 20220303
  Serious: No
  Sender: FDA-Public Use
  Company Number: None

PATIENT
  Sex: Male

DRUGS (1)
  1. AJOVY [Suspect]
     Active Substance: FREMANEZUMAB-VFRM
     Indication: Migraine without aura
     Dosage: OTHER STRENGTH : 22MG/1.5M;?FREQUENCY : MONTHLY;?
     Route: 058
     Dates: start: 20210827

REACTIONS (1)
  - Injection site rash [None]
